FAERS Safety Report 6427897-8 (Version None)
Quarter: 2009Q4

REPORT INFORMATION
  Report Type: 
  Country: None (occurrence: None)
  Receive Date: 20091104
  Receipt Date: 20091104
  Transmission Date: 20100525
  Serious: Yes (Hospitalization)
  Sender: FDA-Public Use
  Company Number: None

PATIENT
  Age: 62 Year
  Sex: Male

DRUGS (4)
  1. IBUPROFEN [Suspect]
     Indication: HEADACHE
     Dosage: 600 MG TID PO
     Route: 048
     Dates: start: 19980930, end: 20091023
  2. IBUPROFEN [Suspect]
     Indication: PAIN
     Dosage: 600 MG TID PO
     Route: 048
     Dates: start: 19980930, end: 20091023
  3. INDOMETHACIN [Suspect]
     Indication: CELLULITIS
     Dosage: 75 MG TID PO
     Route: 048
     Dates: start: 20091009, end: 20091023
  4. INDOMETHACIN [Suspect]
     Indication: PAIN
     Dosage: 75 MG TID PO
     Route: 048
     Dates: start: 20091009, end: 20091023

REACTIONS (1)
  - GASTRITIS [None]
